FAERS Safety Report 5558242-8 (Version None)
Quarter: 2007Q4

REPORT INFORMATION
  Report Type: 
  Country: None (occurrence: None)
  Receive Date: 20071214
  Receipt Date: 20071203
  Transmission Date: 20080405
  Serious: Yes (Hospitalization, Disabling)
  Sender: FDA-Public Use
  Company Number: NO-PFIZER INC-2007092252

PATIENT
  Age: 55 Year
  Sex: Female

DRUGS (8)
  1. LYRICA [Suspect]
     Indication: SCIATICA
  2. SOBRIL [Concomitant]
  3. IMOVANE [Concomitant]
  4. ALBYL-E [Concomitant]
  5. CIPRALEX [Concomitant]
  6. LIPITOR [Concomitant]
  7. NORVASC [Concomitant]
  8. SELO-ZOK [Concomitant]

REACTIONS (2)
  - ANXIETY [None]
  - PANIC DISORDER [None]
